FAERS Safety Report 25950122 (Version 3)
Quarter: 2025Q4

REPORT INFORMATION
  Report Type: Report from Study
  Country: CA (occurrence: CA)
  Receive Date: 20251022
  Receipt Date: 20251201
  Transmission Date: 20260118
  Serious: Yes (Other)
  Sender: SANDOZ
  Company Number: CA-SANDOZ-SDZ2025CA013388

PATIENT
  Sex: Female
  Weight: 47.6 kg

DRUGS (9)
  1. HYRIMOZ [Suspect]
     Active Substance: ADALIMUMAB-ADAZ
     Dosage: 40 MG ONCE EVERY TWO WEEKS
     Route: 058
     Dates: start: 20250314, end: 20250924
  2. HYRIMOZ [Suspect]
     Active Substance: ADALIMUMAB-ADAZ
     Dosage: 40 MG, Q2W
     Route: 058
     Dates: start: 20250314, end: 20250519
  3. HYRIMOZ [Suspect]
     Active Substance: ADALIMUMAB-ADAZ
     Indication: Psoriatic arthropathy
     Dosage: HYRIMOZ 40 MG SOLUTION FOR INJECTION IN PRE-FILLED PEN
     Route: 058
  4. CELECOXIB [Concomitant]
     Active Substance: CELECOXIB
     Indication: Product used for unknown indication
     Dosage: 100 MG, BID
     Route: 048
     Dates: start: 20241106, end: 20241216
  5. DICLOFENAC [Concomitant]
     Active Substance: DICLOFENAC
     Indication: Product used for unknown indication
     Dosage: 75 MG, BID (PRN)
     Route: 048
     Dates: start: 20250109
  6. METHOTREXATE [Concomitant]
     Active Substance: METHOTREXATE
     Indication: Diarrhoea
     Dosage: 20 MG, QW
     Route: 048
     Dates: start: 20241106
  7. PLAQUENIL [Concomitant]
     Active Substance: HYDROXYCHLOROQUINE SULFATE
     Indication: Product used for unknown indication
     Dosage: 300 MG (300 MG PO DIE)
     Route: 048
     Dates: start: 20241213, end: 20250116
  8. SULINDAC [Concomitant]
     Active Substance: SULINDAC
     Indication: Product used for unknown indication
     Dosage: 150 MG, BID (PRN)
     Route: 048
     Dates: start: 20241007
  9. VOLTAREN [Concomitant]
     Active Substance: DICLOFENAC SODIUM
     Indication: Product used for unknown indication
     Dosage: 2 G, BID (GEL)
     Route: 065
     Dates: start: 20250129

REACTIONS (12)
  - Blood pressure decreased [Unknown]
  - Psoriatic arthropathy [Unknown]
  - Asthenia [Unknown]
  - Pallor [Unknown]
  - Dizziness [Unknown]
  - Hypotension [Unknown]
  - Visual impairment [Unknown]
  - Diarrhoea [Unknown]
  - Vertigo [Unknown]
  - Fatigue [Unknown]
  - Pyrexia [Unknown]
  - Headache [Unknown]

NARRATIVE: CASE EVENT DATE: 20250101
